FAERS Safety Report 9537521 (Version 1)
Quarter: 2013Q3

REPORT INFORMATION
  Report Type: Spontaneous
  Country: GR (occurrence: GR)
  Receive Date: 20130919
  Receipt Date: 20130919
  Transmission Date: 20140515
  Serious: Yes (Other)
  Sender: FDA-Public Use
  Company Number: PHHY2013GR103696

PATIENT
  Age: 75 Year
  Sex: Female

DRUGS (2)
  1. ZOMETA [Suspect]
     Dosage: 4 MG, UNK
  2. ZOMETA [Suspect]
     Dosage: UNK UKN, UNK

REACTIONS (2)
  - Breast cancer [Unknown]
  - Hypocalcaemia [Recovered/Resolved]
